FAERS Safety Report 5888939-1 (Version None)
Quarter: 2008Q3

REPORT INFORMATION
  Report Type: 
  Country: None (occurrence: None)
  Receive Date: 20080918
  Receipt Date: 20080918
  Transmission Date: 20090109
  Serious: Yes (Life-Threatening, Hospitalization)
  Sender: FDA-Public Use
  Company Number: None

PATIENT
  Age: 73 Year
  Sex: Male

DRUGS (1)
  1. OMEPRAZOLE [Suspect]
     Indication: GASTROOESOPHAGEAL REFLUX DISEASE
     Dosage: 40 MG EVERY DAY PO
     Route: 048
     Dates: start: 20040303, end: 20080624

REACTIONS (2)
  - IN-STENT CORONARY ARTERY RESTENOSIS [None]
  - THROMBOSIS [None]
